FAERS Safety Report 8457871-1 (Version None)
Quarter: 2012Q2

REPORT INFORMATION
  Report Type: 
  Country: None (occurrence: None)
  Receive Date: 20120622
  Receipt Date: 20120615
  Transmission Date: 20120825
  Serious: Yes (Other)
  Sender: FDA-Public Use
  Company Number: US-JNJFOC-20120608113

PATIENT
  Age: 44 Year
  Sex: Female

DRUGS (2)
  1. STELARA [Suspect]
     Dosage: DOSE 1
     Route: 058
     Dates: start: 20120101
  2. STELARA [Suspect]
     Indication: PSORIASIS
     Dosage: DOSE 2
     Route: 058
     Dates: start: 20120101

REACTIONS (2)
  - OPTIC NEURITIS [None]
  - EYE PAIN [None]
